FAERS Safety Report 6122168-1 (Version None)
Quarter: 2009Q1

REPORT INFORMATION
  Report Type: 
  Country: None (occurrence: None)
  Receive Date: 20090318
  Receipt Date: 20090316
  Transmission Date: 20090719
  Serious: Yes (Life-Threatening, Hospitalization, Other)
  Sender: FDA-Public Use
  Company Number: PHEH2008US09469

PATIENT
  Age: 53 Year
  Sex: Female
  Weight: 52.608 kg

DRUGS (2)
  1. TEKTURNA HCT [Suspect]
     Indication: HYPERTENSION
     Dosage: UNK
     Dates: start: 20061221, end: 20080125
  2. NORVASC [Concomitant]
     Indication: HYPERTENSION

REACTIONS (6)
  - ABDOMINAL DISCOMFORT [None]
  - BLOOD GLUCOSE INCREASED [None]
  - DEHYDRATION [None]
  - DIABETIC KETOACIDOSIS [None]
  - FATIGUE [None]
  - TYPE 1 DIABETES MELLITUS [None]
